FAERS Safety Report 19051147 (Version 2)
Quarter: 2023Q1

REPORT INFORMATION
  Report Type: Spontaneous
  Country: US (occurrence: US)
  Receive Date: 20210324
  Receipt Date: 20230308
  Transmission Date: 20230418
  Serious: No
  Sender: FDA-Public Use
  Company Number: US-ALLERGAN-2100235US

PATIENT
  Age: 79 Year
  Sex: Female
  Weight: 52.154 kg

DRUGS (7)
  1. DELZICOL [Suspect]
     Active Substance: MESALAMINE
     Indication: Colitis ulcerative
     Dosage: 400 MG, QID
     Route: 048
     Dates: start: 202006, end: 2021
  2. DELZICOL [Suspect]
     Active Substance: MESALAMINE
     Indication: Coeliac disease
     Dosage: 400 MG, TID
     Route: 048
     Dates: start: 202006, end: 2021
  3. DELZICOL [Suspect]
     Active Substance: MESALAMINE
     Indication: Crohn^s disease
  4. DELZICOL [Suspect]
     Active Substance: MESALAMINE
     Indication: Diarrhoea
  5. AZATHIOPRINE [Concomitant]
     Active Substance: AZATHIOPRINE
     Indication: Product used for unknown indication
     Dosage: 50 MG
  6. BISOPROLOL [Concomitant]
     Active Substance: BISOPROLOL
     Indication: Hypertension
  7. PANTOPRAZOLE [Concomitant]
     Active Substance: PANTOPRAZOLE
     Indication: Gastric pH decreased

REACTIONS (7)
  - Vitreous floaters [Not Recovered/Not Resolved]
  - Arthralgia [Unknown]
  - Groin pain [Unknown]
  - Gait disturbance [Unknown]
  - Off label use [Unknown]
  - Drug ineffective for unapproved indication [Unknown]
  - Tinnitus [Not Recovered/Not Resolved]

NARRATIVE: CASE EVENT DATE: 20200601
